FAERS Safety Report 12036338 (Version 1)
Quarter: 2016Q1

REPORT INFORMATION
  Report Type: Report from Study
  Country: US (occurrence: US)
  Receive Date: 20160207
  Receipt Date: 20160207
  Transmission Date: 20160526
  Serious: No
  Sender: FDA-Public Use
  Company Number: US-ABBVIE-15K-163-1525228-00

PATIENT
  Age: 39 Year
  Sex: Female

DRUGS (3)
  1. HUMIRA [Suspect]
     Active Substance: ADALIMUMAB
     Dosage: ONE PEN, DAY 22
     Route: 058
     Dates: start: 20151216, end: 20151216
  2. HUMIRA [Suspect]
     Active Substance: ADALIMUMAB
     Indication: PSORIASIS
     Dosage: TWO PEN, DAY ONE
     Route: 058
     Dates: start: 20151125, end: 20151125
  3. HUMIRA [Suspect]
     Active Substance: ADALIMUMAB
     Dosage: ONE PEN, DAY EIGHT
     Route: 058
     Dates: start: 20151202, end: 20151202

REACTIONS (3)
  - Tinnitus [Unknown]
  - Dizziness [Unknown]
  - Migraine [Unknown]

NARRATIVE: CASE EVENT DATE: 20151211
